FAERS Safety Report 6737668-0 (Version None)
Quarter: 2010Q2

REPORT INFORMATION
  Report Type: 
  Country: None (occurrence: None)
  Receive Date: 20100524
  Receipt Date: 20100510
  Transmission Date: 20101027
  Serious: Yes (Other)
  Sender: FDA-Public Use
  Company Number: PHHY2010US30769

PATIENT
  Sex: Female

DRUGS (4)
  1. RECLAST [Suspect]
     Dosage: UNK
     Route: 042
     Dates: start: 20090501
  2. VITAMINS [Suspect]
     Dosage: UNK
  3. IRON [Suspect]
     Dosage: UNK
  4. CALTRATE [Suspect]

REACTIONS (2)
  - BLOOD PRESSURE INCREASED [None]
  - UPPER LIMB FRACTURE [None]
